FAERS Safety Report 20916580 (Version 1)
Quarter: 2022Q2

REPORT INFORMATION
  Report Type: Spontaneous
  Country: US (occurrence: US)
  Receive Date: 20220605
  Receipt Date: 20220605
  Transmission Date: 20220720
  Serious: Yes (Other)
  Sender: FDA-Public Use
  Company Number: US-drreddys-LIT/USA/22/0150737

PATIENT
  Sex: Female

DRUGS (12)
  1. DEFEROXAMINE MESYLATE [Suspect]
     Active Substance: DEFEROXAMINE MESYLATE
     Indication: Iron overload
  2. DEFEROXAMINE MESYLATE [Suspect]
     Active Substance: DEFEROXAMINE MESYLATE
     Indication: Hereditary haemolytic anaemia
  3. TACROLIMUS [Suspect]
     Active Substance: TACROLIMUS
     Indication: Product used for unknown indication
  4. DEFERASIROX [Suspect]
     Active Substance: DEFERASIROX
     Indication: Iron overload
  5. DEFERASIROX [Suspect]
     Active Substance: DEFERASIROX
     Indication: Hereditary haemolytic anaemia
  6. DEFERIPRONE [Suspect]
     Active Substance: DEFERIPRONE
     Indication: Iron overload
  7. DEFERIPRONE [Suspect]
     Active Substance: DEFERIPRONE
     Indication: Hereditary haemolytic anaemia
  8. MYCOPHENOLIC ACID [Suspect]
     Active Substance: MYCOPHENOLIC ACID
     Indication: Product used for unknown indication
  9. INSULIN NOS [Suspect]
     Active Substance: INSULIN NOS
     Indication: Product used for unknown indication
  10. APIXABAN [Suspect]
     Active Substance: APIXABAN
     Indication: Product used for unknown indication
  11. NADOLOL [Suspect]
     Active Substance: NADOLOL
     Indication: Product used for unknown indication
  12. DARBEPOETIN ALFA [Suspect]
     Active Substance: DARBEPOETIN ALFA
     Indication: Product used for unknown indication

REACTIONS (3)
  - Drug hypersensitivity [Unknown]
  - Nephropathy [Unknown]
  - Drug ineffective [Unknown]
